FAERS Safety Report 6001903-7 (Version None)
Quarter: 2008Q4

REPORT INFORMATION
  Report Type: 
  Country: None (occurrence: None)
  Receive Date: 20081215
  Receipt Date: 20081211
  Transmission Date: 20090506
  Serious: Yes (Hospitalization, Other)
  Sender: FDA-Public Use
  Company Number: US-GENENTECH-272759

PATIENT
  Sex: Female
  Weight: 63.039 kg

DRUGS (4)
  1. RAPTIVA [Suspect]
     Indication: PSORIASIS
     Dosage: 60 MG, 1/WEEK
     Route: 058
     Dates: start: 20040101
  2. VITAMINS [Concomitant]
     Indication: DRUG USE FOR UNKNOWN INDICATION
     Dosage: UNK
  3. VICODIN [Concomitant]
     Indication: PAIN
     Dosage: UNK
  4. AMBIEN [Concomitant]
     Indication: INSOMNIA
     Dosage: UNK
     Dates: start: 20071201

REACTIONS (1)
  - TEMPOROMANDIBULAR JOINT SYNDROME [None]
